FAERS Safety Report 24766591 (Version 2)
Quarter: 2025Q2

REPORT INFORMATION
  Report Type: Spontaneous
  Country: JP (occurrence: JP)
  Receive Date: 20241223
  Receipt Date: 20250625
  Transmission Date: 20250716
  Serious: Yes (Other)
  Sender: ALEXION PHARMACEUTICALS
  Company Number: JP-ASTRAZENECA-240126028_012620_P_1

PATIENT
  Age: 5 Decade

DRUGS (3)
  1. TRUQAP [Suspect]
     Active Substance: CAPIVASERTIB
     Indication: Breast cancer
  2. FASLODEX [Suspect]
     Active Substance: FULVESTRANT
     Indication: Breast cancer
  3. FASLODEX [Suspect]
     Active Substance: FULVESTRANT

REACTIONS (3)
  - Malignant neoplasm progression [Recovered/Resolved]
  - Eosinophil count increased [Recovered/Resolved]
  - Rash [Recovered/Resolved]
